FAERS Safety Report 10420775 (Version 1)
Quarter: 2014Q3

REPORT INFORMATION
  Report Type: Spontaneous
  Country: US (occurrence: None)
  Receive Date: 20140709
  Receipt Date: 20140709
  Transmission Date: 20150326
  Serious: Yes (Hospitalization, Other)
  Sender: FDA-Public Use
  Company Number: PHEH2013US010952

PATIENT
  Age: 62 Year
  Sex: Male

DRUGS (1)
  1. GLEEVEC [Suspect]
     Active Substance: IMATINIB MESYLATE
     Indication: CHRONIC MYELOID LEUKAEMIA
     Route: 048
     Dates: start: 201112, end: 201305

REACTIONS (5)
  - Gastrointestinal perforation [None]
  - Pelvic pain [None]
  - Inflammation [None]
  - Back pain [None]
  - Arthritis [None]

NARRATIVE: CASE EVENT DATE: 20130510
